FAERS Safety Report 9641063 (Version 1)
Quarter: 2013Q4

REPORT INFORMATION
  Report Type: Spontaneous
  Country: US (occurrence: US)
  Receive Date: 20131023
  Receipt Date: 20131023
  Transmission Date: 20140711
  Serious: Yes (Other)
  Sender: FDA-Public Use
  Company Number: US-TEVA-420410USA

PATIENT
  Sex: 0

DRUGS (1)
  1. SYNRIBO [Suspect]
     Dates: start: 20130717

REACTIONS (1)
  - White blood cell count increased [Unknown]
